FAERS Safety Report 7981619-8 (Version None)
Quarter: 2011Q4

REPORT INFORMATION
  Report Type: 
  Country: None (occurrence: None)
  Receive Date: 20111215
  Receipt Date: 20100922
  Transmission Date: 20120403
  Serious: Yes (Hospitalization)
  Sender: FDA-Public Use
  Company Number: US-BAYER-200934337NA

PATIENT
  Age: 20 Year
  Sex: Female
  Weight: 67.273 kg

DRUGS (10)
  1. IBUPROFEN [Concomitant]
  2. FLAGYL [Concomitant]
     Dosage: TID X 1 WEEK
     Route: 048
  3. YAZ [Suspect]
     Indication: PRODUCT USED FOR UNKNOWN INDICATION
     Dosage: 1 DF (DAILY DOSE), QD, ORAL
     Route: 048
  4. ASCORBIC ACID [Concomitant]
  5. PHENERGAN [Concomitant]
     Indication: NAUSEA
     Dosage: Q4H PRN
  6. LEVAQUIN [Concomitant]
     Route: 048
  7. YASMIN [Suspect]
     Indication: CONTRACEPTION
     Dosage: 1 DF (DAILY DOSE), QD,
     Dates: start: 20060515, end: 20070929
  8. LEVSIN [Concomitant]
     Indication: ABDOMINAL DISCOMFORT
     Dosage: Q4H PRN
     Route: 060
  9. PERCOCET [Concomitant]
  10. ESTROSTEP [Concomitant]
     Indication: CONTRACEPTION
     Dates: start: 20060101, end: 20060401

REACTIONS (1)
  - PULMONARY EMBOLISM [None]
